FAERS Safety Report 20609981 (Version 2)
Quarter: 2025Q3

REPORT INFORMATION
  Report Type: Spontaneous
  Country: EU (occurrence: EU)
  Receive Date: 20220318
  Receipt Date: 20250823
  Transmission Date: 20251021
  Serious: Yes (Other)
  Sender: AUROBINDO
  Company Number: EU-PFIZER INC-202200323277

PATIENT
  Age: 20 Year
  Sex: Male

DRUGS (3)
  1. ALPRAZOLAM [Interacting]
     Active Substance: ALPRAZOLAM
     Indication: Product used for unknown indication
     Route: 065
  2. PROPRANOLOL [Interacting]
     Active Substance: PROPRANOLOL HYDROCHLORIDE
     Indication: Product used for unknown indication
     Route: 065
  3. HERBALS\WITHANIA SOMNIFERA ROOT [Interacting]
     Active Substance: HERBALS\WITHANIA SOMNIFERA ROOT
     Indication: Anxiety disorder
     Route: 065

REACTIONS (2)
  - Cholestasis [Recovered/Resolved]
  - Drug interaction [Recovered/Resolved]
